FAERS Safety Report 4730215-4 (Version None)
Quarter: 2005Q3

REPORT INFORMATION
  Report Type: 
  Country: None (occurrence: None)
  Receive Date: 20050801
  Receipt Date: 20050721
  Transmission Date: 20060218
  Serious: Yes (Life-Threatening)
  Sender: FDA-Public Use
  Company Number: US-GLAXOSMITHKLINE-A0567218A

PATIENT
  Age: 70 Year
  Sex: Male
  Weight: 91.2 kg

DRUGS (8)
  1. TOSITUMOMAB [Suspect]
     Indication: NON-HODGKIN'S LYMPHOMA
     Dosage: 450MG SINGLE DOSE
     Route: 042
     Dates: start: 20010124, end: 20010124
  2. IODINE I 131 TOSITUMOMAB [Suspect]
     Indication: NON-HODGKIN'S LYMPHOMA
     Dosage: 5.38MCI SINGLE DOSE
     Route: 042
     Dates: start: 20010124, end: 20010124
  3. TOSITUMOMAB [Suspect]
     Dosage: 450MG SINGLE DOSE
     Route: 042
     Dates: start: 20010131, end: 20010131
  4. IODINE I 131 TOSITUMOMAB [Suspect]
     Dosage: 149MCI SINGLE DOSE
     Route: 042
     Dates: start: 20010131, end: 20010131
  5. RITUXAN [Concomitant]
  6. IMMUNE GLOBULIN INTRAVENOUS (HUMAN) [Concomitant]
  7. CYTOXAN [Concomitant]
  8. FLUDARA [Concomitant]

REACTIONS (2)
  - ACUTE MYELOID LEUKAEMIA [None]
  - MYELODYSPLASTIC SYNDROME [None]
